FAERS Safety Report 22004235 (Version 1)
Quarter: 2023Q1

REPORT INFORMATION
  Report Type: Spontaneous
  Country: GB (occurrence: GB)
  Receive Date: 20230217
  Receipt Date: 20230217
  Transmission Date: 20230418
  Serious: Yes (Other)
  Sender: FDA-Public Use
  Company Number: GB-MHRA-ADR 27674247

PATIENT
  Sex: Female

DRUGS (1)
  1. NAPROXEN [Suspect]
     Active Substance: NAPROXEN
     Indication: Pain management
     Dosage: OVER 6 MONTHS
     Route: 065

REACTIONS (3)
  - Gastrooesophageal reflux disease [Unknown]
  - Gastric disorder [Unknown]
  - Functional gastrointestinal disorder [Unknown]
